FAERS Safety Report 9710499 (Version 1)
Quarter: 2013Q4

REPORT INFORMATION
  Report Type: Spontaneous
  Country: US (occurrence: US)
  Receive Date: 20131126
  Receipt Date: 20131126
  Transmission Date: 20140711
  Serious: Yes (Other)
  Sender: FDA-Public Use
  Company Number: US-BRISTOL-MYERS SQUIBB COMPANY-18833392

PATIENT
  Age: 58 Year
  Sex: Female
  Weight: 114.28 kg

DRUGS (13)
  1. BYETTA [Suspect]
     Indication: TYPE 2 DIABETES MELLITUS
     Dosage: REST:SEP2013
  2. PRILOSEC [Concomitant]
  3. BABY ASPIRIN [Concomitant]
  4. HCTZ [Concomitant]
  5. METOPROLOL [Concomitant]
  6. KLOR-CON [Concomitant]
  7. LISINOPRIL [Concomitant]
  8. VITAMIN D [Concomitant]
  9. SIMVASTATIN [Concomitant]
  10. LEVOTHYROXINE [Concomitant]
  11. ALPRAZOLAM [Concomitant]
  12. AMITRIPTYLINE [Concomitant]
  13. TRILIPIX [Concomitant]

REACTIONS (7)
  - Loss of consciousness [Unknown]
  - Blood glucose decreased [Unknown]
  - Nausea [Unknown]
  - Vomiting [Unknown]
  - Diarrhoea [Unknown]
  - Anxiety [Unknown]
  - Weight decreased [Unknown]
